FAERS Safety Report 5410510-6 (Version None)
Quarter: 2007Q3

REPORT INFORMATION
  Report Type: 
  Country: None (occurrence: None)
  Receive Date: 20070810
  Receipt Date: 20070131
  Transmission Date: 20080115
  Serious: No
  Sender: FDA-Public Use
  Company Number: A0637859A

PATIENT
  Sex: Female

DRUGS (1)
  1. PAXIL [Suspect]
     Indication: MIGRAINE
     Route: 048

REACTIONS (2)
  - DEPRESSED MOOD [None]
  - DRUG WITHDRAWAL SYNDROME [None]
